FAERS Safety Report 4630704-7 (Version None)
Quarter: 2005Q2

REPORT INFORMATION
  Report Type: 
  Country: None (occurrence: None)
  Receive Date: 20050408
  Receipt Date: 20050121
  Transmission Date: 20051028
  Serious: Yes (Hospitalization)
  Sender: FDA-Public Use
  Company Number: CH-ROCHE-393067

PATIENT
  Age: 43 Year
  Sex: Female
  Weight: 58 kg

DRUGS (5)
  1. ROACCUTANE [Suspect]
     Indication: ACNE
     Route: 048
     Dates: start: 20041030, end: 20050111
  2. FLUOXETINE [Concomitant]
     Indication: DEPRESSION
     Route: 048
  3. FLUCTINE [Concomitant]
     Indication: DEPRESSION
     Route: 048
     Dates: end: 20050115
  4. FELDEN [Concomitant]
     Indication: HEADACHE
     Route: 048
     Dates: start: 20040615
  5. ELTROXIN [Concomitant]
     Indication: HYPOTHYROIDISM
     Route: 048
     Dates: start: 20000615, end: 20050115

REACTIONS (8)
  - ANGIONEUROTIC OEDEMA [None]
  - ASCITES [None]
  - CAPILLARY LEAK SYNDROME [None]
  - HEPATOMEGALY [None]
  - IRON DEFICIENCY ANAEMIA [None]
  - PLEURAL EFFUSION [None]
  - PULMONARY CONGESTION [None]
  - VAGINAL HAEMORRHAGE [None]
